FAERS Safety Report 16468157 (Version 3)
Quarter: 2021Q2

REPORT INFORMATION
  Report Type: Spontaneous
  Country: DE (occurrence: DE)
  Receive Date: 20190624
  Receipt Date: 20210630
  Transmission Date: 20210716
  Serious: Yes (Other)
  Sender: FDA-Public Use
  Company Number: DE-AUROBINDO-AUR-APL-2019-035604

PATIENT
  Sex: Male

DRUGS (12)
  1. CO?DIOVAN [Suspect]
     Active Substance: HYDROCHLOROTHIAZIDE\VALSARTAN
     Dosage: 160/12.5 MG)
     Route: 065
     Dates: start: 201002, end: 201008
  2. CO?DIOVAN [Suspect]
     Active Substance: HYDROCHLOROTHIAZIDE\VALSARTAN
     Dosage: 320/12.5 MG
     Route: 065
     Dates: start: 201008, end: 201009
  3. VALSACOR COMP [Concomitant]
     Active Substance: HYDROCHLOROTHIAZIDE\VALSARTAN
     Dosage: 160/12.5 MG
     Route: 065
     Dates: start: 201807
  4. CO?DIOVAN [Suspect]
     Active Substance: HYDROCHLOROTHIAZIDE\VALSARTAN
     Indication: HYPERTENSION
     Dosage: 1 DOSAGE FORM, ONCE A DAY
     Route: 065
     Dates: start: 2000
  5. CO?DIOVAN [Suspect]
     Active Substance: HYDROCHLOROTHIAZIDE\VALSARTAN
     Dosage: 160/12.5 MG
     Route: 065
     Dates: start: 201009, end: 201407
  6. VALSARTAN 1A PHARMA PLUS [Suspect]
     Active Substance: HYDROCHLOROTHIAZIDE\VALSARTAN
     Dosage: 160/12.5 MG ONCE A DAY
     Route: 065
     Dates: start: 201506, end: 201807
  7. VALSACOR COMP [Concomitant]
     Active Substance: HYDROCHLOROTHIAZIDE\VALSARTAN
     Indication: PRODUCT USED FOR UNKNOWN INDICATION
     Dosage: 160/12.5 MG
     Route: 065
     Dates: start: 201209, end: 201209
  8. VALSARTAN. [Suspect]
     Active Substance: VALSARTAN
     Indication: HYPERTENSION
     Dosage: 160/12.5 MG ONCE A DAY
     Route: 065
     Dates: start: 201209
  9. VALSARTAN AND HYDROCHLOROTHIAZIDE [Suspect]
     Active Substance: HYDROCHLOROTHIAZIDE\VALSARTAN
     Indication: PRODUCT USED FOR UNKNOWN INDICATION
     Dosage: 1 DOSAGE FORM, ONCE A DAY
     Route: 065
     Dates: start: 20150618, end: 2018
  10. VALSARTAN 1A PHARMA PLUS [Suspect]
     Active Substance: HYDROCHLOROTHIAZIDE\VALSARTAN
     Indication: HYPERTENSION
     Dosage: 160/12.5 MG ONCE A DAY
     Route: 065
     Dates: start: 20140621, end: 201502
  11. VALSACOR COMP [Concomitant]
     Active Substance: HYDROCHLOROTHIAZIDE\VALSARTAN
     Dosage: 160 MILLIGRAM, UNK
     Route: 065
     Dates: start: 20170703
  12. VALSACOR COMP [Concomitant]
     Active Substance: HYDROCHLOROTHIAZIDE\VALSARTAN
     Dosage: 160/12.5 MG
     Route: 065
     Dates: start: 201502, end: 201506

REACTIONS (11)
  - Listless [Unknown]
  - Renal cyst [Unknown]
  - Fear [Unknown]
  - Testicular cyst [Unknown]
  - Fatigue [Unknown]
  - Anxiety [Unknown]
  - Disturbance in attention [Unknown]
  - Quality of life decreased [Unknown]
  - Mental disorder [Unknown]
  - Emotional distress [Unknown]
  - Sleep disorder [Unknown]

NARRATIVE: CASE EVENT DATE: 2005
